FAERS Safety Report 4718982-7 (Version None)
Quarter: 2005Q3

REPORT INFORMATION
  Report Type: 
  Country: None (occurrence: None)
  Receive Date: 20050720
  Receipt Date: 20050601
  Transmission Date: 20060218
  Serious: Yes (Disabling)
  Sender: FDA-Public Use
  Company Number: US-MERCK-0506USA00488

PATIENT
  Age: 62 Year
  Sex: Male
  Weight: 93 kg

DRUGS (5)
  1. ZETIA [Suspect]
     Indication: BLOOD CHOLESTEROL INCREASED
     Route: 048
     Dates: start: 20040101, end: 20050401
  2. DIOVAN [Concomitant]
     Route: 065
  3. HYDRODIURIL [Concomitant]
     Route: 048
  4. AMBIEN [Concomitant]
     Route: 065
  5. NONSTEROIDAL ANTI-INFLAMMATORY DRUG (UNSPECIFIED) [Concomitant]
     Route: 065

REACTIONS (2)
  - ARTHRITIS [None]
  - PAIN IN EXTREMITY [None]
